FAERS Safety Report 9337927 (Version 1)
Quarter: 2013Q2

REPORT INFORMATION
  Report Type: Spontaneous
  Country: JP (occurrence: JP)
  Receive Date: 20130609
  Receipt Date: 20130609
  Transmission Date: 20140414
  Serious: Yes (Death)
  Sender: FDA-Public Use
  Company Number: JP-SANOFI-AVENTIS-2013SA055372

PATIENT
  Age: 45 Year
  Sex: Male
  Weight: 55 kg

DRUGS (12)
  1. PLAVIX [Suspect]
     Indication: PROPHYLAXIS
     Route: 048
     Dates: start: 200702, end: 20121019
  2. WARFARIN [Suspect]
     Indication: PROPHYLAXIS
     Dosage: STRENGTH: 1 MG
     Route: 048
     Dates: end: 20121019
  3. WARFARIN [Suspect]
     Indication: PROPHYLAXIS
     Dosage: STRENGTH: .5 MG
     Route: 048
     Dates: end: 20121019
  4. ASPIRIN [Suspect]
     Indication: PROPHYLAXIS
     Dosage: STRENGTH: 100 MG
     Route: 048
     Dates: end: 20121019
  5. FABRAZYME [Suspect]
     Indication: FABRY^S DISEASE
     Route: 042
     Dates: start: 20040813, end: 20121017
  6. FABRAZYME [Suspect]
     Indication: OESTROGEN REPLACEMENT THERAPY
     Route: 042
     Dates: start: 20040813, end: 20121017
  7. TEGRETOL [Concomitant]
     Indication: NEURALGIA
     Route: 048
     Dates: end: 20121019
  8. PARIET [Concomitant]
     Indication: PROPHYLAXIS AGAINST GASTROINTESTINAL ULCER
     Route: 048
     Dates: end: 20121019
  9. ALDACTONE-A [Concomitant]
     Indication: OEDEMA
     Route: 048
     Dates: end: 20121019
  10. BLOPRESS [Concomitant]
     Indication: PROTEINURIA
     Route: 048
     Dates: end: 20121019
  11. MUCOSTA [Concomitant]
     Indication: GASTRITIS
     Route: 048
     Dates: end: 20121019
  12. LASIX [Concomitant]
     Indication: OEDEMA
     Route: 048
     Dates: end: 20121019

REACTIONS (2)
  - Cardio-respiratory arrest [Fatal]
  - Cerebral haemorrhage [Fatal]
